FAERS Safety Report 11152307 (Version 1)
Quarter: 2015Q2

REPORT INFORMATION
  Report Type: Spontaneous
  Country: US (occurrence: None)
  Receive Date: 20150529
  Receipt Date: 20150529
  Transmission Date: 20150821
  Serious: No
  Sender: FDA-Public Use
  Company Number: None

PATIENT
  Age: 46 Year
  Sex: Female
  Weight: 60.5 kg

DRUGS (1)
  1. GLOBULIN, IMMUNE [Suspect]
     Active Substance: HUMAN IMMUNOGLOBULIN G
     Dates: end: 20150527

REACTIONS (3)
  - Infusion related reaction [None]
  - Pruritus generalised [None]
  - Paraesthesia [None]

NARRATIVE: CASE EVENT DATE: 20150527
